FAERS Safety Report 17214977 (Version 1)
Quarter: 2019Q4

REPORT INFORMATION
  Report Type: Spontaneous
  Country: FR (occurrence: FR)
  Receive Date: 20191230
  Receipt Date: 20191230
  Transmission Date: 20200122
  Serious: Yes (Other)
  Sender: FDA-Public Use
  Company Number: FR-MYLANLABS-2019M1126852

PATIENT
  Age: 49 Year
  Sex: Female

DRUGS (3)
  1. QUETIAPIN ?MYLAN? [Suspect]
     Active Substance: QUETIAPINE
     Indication: ANXIETY
     Dosage: DAILY DOSE OF 1 TAB/DAY
     Dates: start: 20191211
  2. VENLAFAXINE [Suspect]
     Active Substance: VENLAFAXINE HYDROCHLORIDE
     Indication: ANXIETY
     Dosage: DAILY DOSE OF 1 TAB/DAY
     Dates: start: 20191212
  3. SEROPLEX [Suspect]
     Active Substance: ESCITALOPRAM OXALATE
     Indication: ANXIETY DISORDER

REACTIONS (4)
  - Fatigue [Unknown]
  - Somnolence [Unknown]
  - Major depression [Unknown]
  - Feeling abnormal [Unknown]
